FAERS Safety Report 19279026 (Version 1)
Quarter: 2021Q2

REPORT INFORMATION
  Report Type: Spontaneous
  Country: US (occurrence: US)
  Receive Date: 20210520
  Receipt Date: 20210520
  Transmission Date: 20210717
  Serious: Yes (Other)
  Sender: FDA-Public Use
  Company Number: None

PATIENT
  Age: 71 Year
  Sex: Male
  Weight: 74.1 kg

DRUGS (9)
  1. HYDROCODONE/ACETAMINOPHEN [Concomitant]
     Active Substance: ACETAMINOPHEN\HYDROCODONE
  2. LOSARTAN POTASSIUM. [Concomitant]
     Active Substance: LOSARTAN POTASSIUM
  3. MORPHINE SULFATE ER [Concomitant]
     Active Substance: MORPHINE SULFATE
  4. METOPROLOL TARTRATE. [Concomitant]
     Active Substance: METOPROLOL TARTRATE
  5. TRADJENTA [Concomitant]
     Active Substance: LINAGLIPTIN
  6. IMBRUVICA [Suspect]
     Active Substance: IBRUTINIB
     Indication: FOLLICULAR LYMPHOMA
     Route: 048
     Dates: start: 20210224
  7. ASPIRIN. [Concomitant]
     Active Substance: ASPIRIN
  8. ALLOPURINOL. [Concomitant]
     Active Substance: ALLOPURINOL
  9. ROSUVASTATIN CALCIUM. [Concomitant]
     Active Substance: ROSUVASTATIN CALCIUM

REACTIONS (1)
  - Disease progression [None]
